FAERS Safety Report 13120434 (Version 3)
Quarter: 2021Q1

REPORT INFORMATION
  Report Type: Report from Study
  Country: CA (occurrence: CA)
  Receive Date: 20170117
  Receipt Date: 20210201
  Transmission Date: 20210419
  Serious: Yes (Hospitalization, Other)
  Sender: FDA-Public Use
  Company Number: PHHY2016CA152390

PATIENT
  Age: 28 Year
  Sex: Female

DRUGS (12)
  1. XOLAIR [Suspect]
     Active Substance: OMALIZUMAB
     Dosage: UNK
     Route: 058
     Dates: start: 20161103
  2. XOLAIR [Suspect]
     Active Substance: OMALIZUMAB
     Dosage: 600 MG, Q4W
     Route: 058
  3. XOLAIR [Suspect]
     Active Substance: OMALIZUMAB
     Dosage: UNK
     Route: 058
     Dates: start: 20170106
  4. XOLAIR [Suspect]
     Active Substance: OMALIZUMAB
     Dosage: 450 MG, Q4W
     Route: 058
  5. XOLAIR [Suspect]
     Active Substance: OMALIZUMAB
     Dosage: 300 MG, Q4W
     Route: 058
  6. XOLAIR [Suspect]
     Active Substance: OMALIZUMAB
     Dosage: UNK
     Route: 058
     Dates: start: 20180202
  7. XOLAIR [Suspect]
     Active Substance: OMALIZUMAB
     Indication: CHRONIC SPONTANEOUS URTICARIA
     Dosage: 300 MG, Q4W
     Route: 058
     Dates: start: 20150522
  8. XOLAIR [Suspect]
     Active Substance: OMALIZUMAB
     Dosage: UNK
     Route: 058
     Dates: start: 20161006
  9. XOLAIR [Suspect]
     Active Substance: OMALIZUMAB
     Dosage: UNK
     Route: 058
     Dates: start: 20161201
  10. CIPROFLOXACIN. [Suspect]
     Active Substance: CIPROFLOXACIN
     Indication: KIDNEY INFECTION
     Dosage: 500 MG, BID
     Route: 048
  11. XOLAIR [Suspect]
     Active Substance: OMALIZUMAB
     Dosage: 600 MG, UNK
     Route: 058
     Dates: start: 20170406
  12. CIPROFLOXACIN. [Suspect]
     Active Substance: CIPROFLOXACIN
     Dosage: UNK
     Route: 048

REACTIONS (19)
  - Kidney infection [Recovered/Resolved]
  - Wheezing [Unknown]
  - Pyelonephritis [Unknown]
  - Anaphylactic reaction [Recovered/Resolved]
  - Cough [Unknown]
  - Incorrect dose administered [Unknown]
  - Immunodeficiency [Unknown]
  - Crepitations [Unknown]
  - Urticaria [Not Recovered/Not Resolved]
  - Hypoventilation [Unknown]
  - Bronchitis [Unknown]
  - Chest discomfort [Unknown]
  - Exposure to SARS-CoV-2 [Unknown]
  - Nasopharyngitis [Unknown]
  - Gluten sensitivity [Recovered/Resolved]
  - Insomnia [Unknown]
  - Pneumonia [Unknown]
  - Sepsis [Unknown]
  - Drug hypersensitivity [Unknown]

NARRATIVE: CASE EVENT DATE: 201610
